FAERS Safety Report 8869248 (Version 3)
Quarter: 2013Q2

REPORT INFORMATION
  Report Type: Spontaneous
  Country: US (occurrence: US)
  Receive Date: 20121030
  Receipt Date: 20130516
  Transmission Date: 20140414
  Serious: Yes (Other)
  Sender: FDA-Public Use
  Company Number: US-BAXTER-2012BAX020646

PATIENT
  Age: 55 Year
  Sex: Female
  Weight: 77.3 kg

DRUGS (7)
  1. ARALAST NP [Suspect]
     Indication: ALPHA-1 ANTI-TRYPSIN DEFICIENCY
     Route: 042
     Dates: start: 20120926, end: 20120926
  2. ARALAST NP [Suspect]
     Route: 042
     Dates: start: 20121003, end: 20121003
  3. ARALAST NP [Suspect]
     Route: 042
     Dates: start: 20121010, end: 20121010
  4. ARALAST NP [Suspect]
     Route: 042
     Dates: start: 20121017, end: 20121017
  5. SPIRIVA [Concomitant]
     Indication: PRODUCT USED FOR UNKNOWN INDICATION
     Route: 055
     Dates: start: 20120920
  6. VENTOLIN [Concomitant]
     Indication: PRODUCT USED FOR UNKNOWN INDICATION
     Route: 055
     Dates: start: 20120920
  7. DIOVAN [Concomitant]
     Indication: PRODUCT USED FOR UNKNOWN INDICATION
     Route: 048

REACTIONS (2)
  - Influenza like illness [Not Recovered/Not Resolved]
  - Anxiety [Not Recovered/Not Resolved]
